FAERS Safety Report 7186454-9 (Version None)
Quarter: 2010Q4

REPORT INFORMATION
  Report Type: 
  Country: None (occurrence: None)
  Receive Date: 20101222
  Receipt Date: 20101215
  Transmission Date: 20110411
  Serious: Yes (Disabling)
  Sender: FDA-Public Use
  Company Number: B0689239A

PATIENT
  Age: 62 Year
  Sex: Female
  Weight: 89 kg

DRUGS (1)
  1. ORLISTAT [Suspect]
     Route: 048
     Dates: start: 20090501, end: 20101001

REACTIONS (2)
  - NEPHROPATHY [None]
  - RENAL FAILURE [None]
